FAERS Safety Report 13134359 (Version 4)
Quarter: 2018Q2

REPORT INFORMATION
  Report Type: Spontaneous
  Country: US (occurrence: US)
  Receive Date: 20170120
  Receipt Date: 20180517
  Transmission Date: 20180711
  Serious: Yes (Other)
  Sender: FDA-Public Use
  Company Number: US-PFIZER INC-2015375995

PATIENT
  Age: 14 Year
  Sex: Male
  Weight: 52 kg

DRUGS (10)
  1. GENOTROPIN [Suspect]
     Active Substance: SOMATROPIN
     Indication: GROWTH HORMONE DEFICIENCY
     Dosage: 2 MG, CYCLIC (FOR 6 DAYS THEN OFF FOR ONE DAY)
     Dates: start: 20151021
  2. GENOTROPIN [Suspect]
     Active Substance: SOMATROPIN
     Indication: PUBERTY
     Dosage: 2.2 MG, DAILY
  3. HUMALOG [Concomitant]
     Active Substance: INSULIN LISPRO
     Indication: TYPE 1 DIABETES MELLITUS
     Dosage: UNK, DAILY (8 MG/UNIT FOR 24 HOUR PERIOD)
  4. CLONIDINE. [Concomitant]
     Active Substance: CLONIDINE
     Dosage: 0.1 MG, UNK
  5. GENOTROPIN [Suspect]
     Active Substance: SOMATROPIN
     Indication: MICROCEPHALY
     Dosage: 2.2 ML, (THE NEXT DAY)
  6. CELEXA [Concomitant]
     Active Substance: CITALOPRAM HYDROBROMIDE
     Dosage: UNK
  7. ADDERALL [Concomitant]
     Active Substance: AMPHETAMINE ASPARTATE\AMPHETAMINE SULFATE\DEXTROAMPHETAMINE SACCHARATE\DEXTROAMPHETAMINE SULFATE
     Dosage: UNK
  8. GENOTROPIN [Suspect]
     Active Substance: SOMATROPIN
     Indication: TYPE 1 DIABETES MELLITUS
     Dosage: 2 ML, (ONE DAY)
  9. GENOTROPIN [Suspect]
     Active Substance: SOMATROPIN
     Indication: CEREBRAL PALSY
     Dosage: 2.6 MG, DAILY
     Route: 058
  10. INSULIN [Concomitant]
     Active Substance: INSULIN NOS
     Indication: TYPE 1 DIABETES MELLITUS
     Dosage: UNK (SLIDING SCALE, EVERY HOUR ON THE HOUR)

REACTIONS (5)
  - Diabetes mellitus inadequate control [Not Recovered/Not Resolved]
  - Incorrect dose administered [Not Recovered/Not Resolved]
  - Device issue [Not Recovered/Not Resolved]
  - Hypoglycaemia [Not Recovered/Not Resolved]
  - Drug dose omission [Unknown]

NARRATIVE: CASE EVENT DATE: 201510
